FAERS Safety Report 8963681 (Version 1)
Quarter: 2012Q4

REPORT INFORMATION
  Report Type: 
  Country: US (occurrence: US)
  Receive Date: 20121214
  Receipt Date: 20121214
  Transmission Date: 20130627
  Serious: No
  Sender: FDA-Public Use
  Company Number: US-009507513-1212USA005471

PATIENT
  Age: 21 Year
  Sex: Female
  Weight: 95.24 kg

DRUGS (3)
  1. NEXPLANON [Suspect]
     Indication: CONTRACEPTION
     Dosage: 1 rod upto 3 years
     Route: 059
     Dates: start: 20121203
  2. VITAMIN D (UNSPECIFIED) [Concomitant]
  3. DEPO A [Concomitant]
     Indication: CONTRACEPTION
     Dosage: UNK
     Dates: end: 20121203

REACTIONS (3)
  - Trichorrhexis [Unknown]
  - Implant site swelling [Unknown]
  - Implant site pruritus [Unknown]
